FAERS Safety Report 5483636-9 (Version None)
Quarter: 2007Q4

REPORT INFORMATION
  Report Type: 
  Country: None (occurrence: None)
  Receive Date: 20071010
  Receipt Date: 20071003
  Transmission Date: 20080405
  Serious: Yes (Other)
  Sender: FDA-Public Use
  Company Number: 2007332373

PATIENT
  Age: 17 Year
  Sex: Female
  Weight: 90.7 kg

DRUGS (1)
  1. BENADRYL [Suspect]
     Indication: HEADACHE
     Dosage: 2 CAPSULES 2 TIMES 15 MINUTES APART, ORAL
     Route: 048
     Dates: start: 20071003

REACTIONS (1)
  - DYSARTHRIA [None]
